FAERS Safety Report 7449646-7 (Version None)
Quarter: 2011Q2

REPORT INFORMATION
  Report Type: 
  Country: None (occurrence: None)
  Receive Date: 20110502
  Receipt Date: 20110426
  Transmission Date: 20111010
  Serious: Yes (Hospitalization)
  Sender: FDA-Public Use
  Company Number: JP-ELI_LILLY_AND_COMPANY-JP201104007288

PATIENT
  Age: 75 Year
  Sex: Female

DRUGS (3)
  1. HUMALOG MIX 75/25 [Suspect]
     Indication: TYPE 1 DIABETES MELLITUS
     Dosage: UNK, BID
  2. HUMALOG [Suspect]
     Indication: TYPE 1 DIABETES MELLITUS
  3. INSULIN GLARGINE [Concomitant]
     Indication: TYPE 1 DIABETES MELLITUS

REACTIONS (1)
  - LIVER DISORDER [None]
